FAERS Safety Report 8934710 (Version 1)
Quarter: 2012Q4

REPORT INFORMATION
  Report Type: 
  Country: US (occurrence: US)
  Receive Date: 20121129
  Receipt Date: 20121129
  Transmission Date: 20130627
  Serious: Yes (Life-Threatening, Hospitalization, Other)
  Sender: FDA-Public Use
  Company Number: CHPA2012US024402

PATIENT
  Age: 74 Year
  Sex: Female

DRUGS (9)
  1. EXCEDRIN EXTRA STRENGTH [Suspect]
     Indication: HEADACHE
     Dosage: 2 pills, Unk
     Route: 048
  2. LYRICA [Suspect]
     Indication: NEUROPATHY PERIPHERAL
     Dosage: 1 DF at night
  3. LYRICA [Suspect]
     Dosage: 1 DF in the morning and 2 DF at night
  4. NOVOLOG [Concomitant]
  5. DRUG THERAPY NOS [Concomitant]
  6. METFORMIN [Concomitant]
  7. MULTIVIT [Concomitant]
  8. REPAN [Concomitant]
     Indication: MIGRAINE
  9. TYLENOL [Concomitant]

REACTIONS (12)
  - Pancreatitis [Recovered/Resolved]
  - Cholelithiasis [Recovered/Resolved]
  - Gallbladder disorder [Recovered/Resolved]
  - Vomiting [Recovered/Resolved]
  - Amnesia [Recovered/Resolved]
  - Neuropathy peripheral [Unknown]
  - Hypertension [Not Recovered/Not Resolved]
  - Diabetes mellitus [Not Recovered/Not Resolved]
  - Asthenia [Unknown]
  - Feeling abnormal [Recovered/Resolved]
  - Headache [Not Recovered/Not Resolved]
  - Expired drug administered [Unknown]
